FAERS Safety Report 8583977-2 (Version None)
Quarter: 2012Q3

REPORT INFORMATION
  Report Type: 
  Country: None (occurrence: None)
  Receive Date: 20120810
  Receipt Date: 20120712
  Transmission Date: 20120928
  Serious: No
  Sender: FDA-Public Use
  Company Number: US-009507513-1205USA04750

PATIENT

DRUGS (2)
  1. AZASITE [Suspect]
     Indication: BLEPHARITIS
     Dosage: UNK UNK, QD
     Route: 047
     Dates: start: 20120510, end: 20120607
  2. AZASITE [Suspect]
     Indication: ROSACEA
     Dosage: UNK, BID
     Route: 047
     Dates: start: 20120507, end: 20120509

REACTIONS (3)
  - EYE IRRITATION [None]
  - OFF LABEL USE [None]
  - INCORRECT DRUG ADMINISTRATION DURATION [None]
